FAERS Safety Report 17554721 (Version 5)
Quarter: 2025Q1

REPORT INFORMATION
  Report Type: Report from Study
  Country: IT (occurrence: IT)
  Receive Date: 20200318
  Receipt Date: 20250121
  Transmission Date: 20250409
  Serious: Yes (Other)
  Sender: AUROBINDO
  Company Number: IT-ASPEN-GLO2020IT002644

PATIENT
  Age: 75 Year
  Sex: Female

DRUGS (3)
  1. MELPHALAN [Suspect]
     Active Substance: MELPHALAN
     Indication: Plasma cell myeloma
     Dosage: 9 MILLIGRAM/SQ. METER DAYS 1?4
     Route: 065
  2. BORTEZOMIB [Suspect]
     Active Substance: BORTEZOMIB
     Indication: Plasma cell myeloma
     Route: 065
  3. PREDNISONE [Suspect]
     Active Substance: PREDNISONE
     Indication: Plasma cell myeloma
     Route: 065

REACTIONS (4)
  - Neutropenia [Unknown]
  - Muscular weakness [Recovered/Resolved]
  - Myopathy [Recovered/Resolved]
  - Metabolic disorder [Recovered/Resolved]
